FAERS Safety Report 19912169 (Version 1)
Quarter: 2021Q4

REPORT INFORMATION
  Report Type: Spontaneous
  Country: US (occurrence: US)
  Receive Date: 20211002
  Receipt Date: 20211002
  Transmission Date: 20220303
  Serious: Yes (Other)
  Sender: FDA-Public Use
  Company Number: None

PATIENT
  Age: 89 Year
  Sex: Female

DRUGS (1)
  1. REPATHA [Suspect]
     Active Substance: EVOLOCUMAB
     Indication: Hyperlipidaemia
     Dosage: ?          OTHER FREQUENCY:Q 2 WEEKS;
     Route: 058
     Dates: start: 20210929, end: 20211002

REACTIONS (7)
  - Abdominal wall disorder [None]
  - Skin burning sensation [None]
  - Pain in extremity [None]
  - Pain [None]
  - Musculoskeletal pain [None]
  - Dyspnoea [None]
  - Insomnia [None]

NARRATIVE: CASE EVENT DATE: 20210929
